FAERS Safety Report 5905754-0 (Version None)
Quarter: 2008Q4

REPORT INFORMATION
  Report Type: 
  Country: None (occurrence: None)
  Receive Date: 20081002
  Receipt Date: 20080925
  Transmission Date: 20090506
  Serious: Yes (Hospitalization)
  Sender: FDA-Public Use
  Company Number: GB-NOVOPROD-278154

PATIENT
  Sex: Female
  Weight: 71.65 kg

DRUGS (4)
  1. NOVOLOG MIX 70/30 [Suspect]
     Indication: INSULIN-REQUIRING TYPE 2 DIABETES MELLITUS
     Dosage: 40 IU, BID
     Route: 058
     Dates: start: 20000229
  2. ACEON [Concomitant]
     Dosage: 6 MG, QD
     Route: 058
     Dates: start: 20060810
  3. OMEPRAZOLE [Concomitant]
     Dosage: 20 MG, QD
     Route: 048
     Dates: start: 20080819
  4. LEVOTHYROXINE SODIUM [Concomitant]
     Dosage: 75 MG, QD
     Route: 048
     Dates: start: 20051013

REACTIONS (3)
  - BLOOD GLUCOSE INCREASED [None]
  - LOWER RESPIRATORY TRACT INFECTION [None]
  - MYOCARDIAL INFARCTION [None]
